FAERS Safety Report 5517698-7 (Version None)
Quarter: 2007Q4

REPORT INFORMATION
  Report Type: 
  Country: None (occurrence: None)
  Receive Date: 20071114
  Receipt Date: 20071107
  Transmission Date: 20080405
  Serious: Yes (Other)
  Sender: FDA-Public Use
  Company Number: US-ELI_LILLY_AND_COMPANY-US200711001849

PATIENT
  Age: 54 Year
  Sex: Male

DRUGS (6)
  1. CYMBALTA [Suspect]
     Indication: DEPRESSION
     Dosage: 60 MG, EACH EVENING
     Route: 048
     Dates: start: 20070601, end: 20071004
  2. CYMBALTA [Suspect]
     Dosage: 120 MG, EACH EVENING
     Route: 048
     Dates: start: 20071005
  3. OXYCODONE HCL [Concomitant]
  4. TRAZODONE HCL [Concomitant]
  5. ACETAMINOPHEN AND OXYCODONE HCL [Concomitant]
  6. TRICYCLIC ANTIDEPRESSANTS [Concomitant]

REACTIONS (4)
  - AGITATION [None]
  - ANGER [None]
  - HOSTILITY [None]
  - SURGERY [None]
